FAERS Safety Report 15213047 (Version 1)
Quarter: 2018Q3

REPORT INFORMATION
  Report Type: Spontaneous
  Country: ES (occurrence: ES)
  Receive Date: 20180730
  Receipt Date: 20180730
  Transmission Date: 20181010
  Serious: Yes (Hospitalization, Other)
  Sender: FDA-Public Use
  Company Number: ES-ACCORD-070013

PATIENT
  Age: 45 Year
  Sex: Male

DRUGS (8)
  1. ACETYLSALICYLIC ACID [Interacting]
     Active Substance: ASPIRIN
     Indication: ANTIPLATELET THERAPY
     Dates: start: 2014
  2. BISOPROLOL [Concomitant]
     Active Substance: BISOPROLOL
     Dates: start: 2014
  3. ATORVASTATIN [Concomitant]
     Active Substance: ATORVASTATIN
     Dates: start: 2014
  4. CLOPIDOGREL [Suspect]
     Active Substance: CLOPIDOGREL BISULFATE
     Indication: ANTIPLATELET THERAPY
     Dates: start: 2014
  5. OMEPRAZOLE. [Concomitant]
     Active Substance: OMEPRAZOLE
     Dates: start: 2014
  6. ENALAPRIL [Concomitant]
     Active Substance: ENALAPRIL
     Dates: start: 2014
  7. DARUNAVIR [Interacting]
     Active Substance: DARUNAVIR
     Indication: HIV INFECTION
  8. RITONAVIR. [Interacting]
     Active Substance: RITONAVIR
     Indication: HIV INFECTION

REACTIONS (3)
  - Acute myocardial infarction [Recovered/Resolved]
  - Vascular stent thrombosis [Recovered/Resolved]
  - Drug interaction [Unknown]
